FAERS Safety Report 4832123-7 (Version None)
Quarter: 2005Q4

REPORT INFORMATION
  Report Type: 
  Country: None (occurrence: None)
  Receive Date: 20051118
  Receipt Date: 20050921
  Transmission Date: 20060501
  Serious: Yes (Disabling)
  Sender: FDA-Public Use
  Company Number: CA-MERCK-0509CAN00135

PATIENT
  Sex: Male

DRUGS (10)
  1. VIOXX [Suspect]
     Indication: BACK PAIN
     Route: 048
     Dates: start: 20000613, end: 20040101
  2. HYDROMORPHONE HYDROCHLORIDE [Concomitant]
     Route: 048
  3. NAPROXEN [Concomitant]
     Route: 048
  4. ASPIRIN [Concomitant]
     Route: 065
  5. PRAVASTATIN SODIUM [Concomitant]
     Route: 065
  6. ALPRAZOLAM [Concomitant]
     Route: 065
  7. ALPRAZOLAM [Concomitant]
     Route: 065
  8. OMEPRAZOLE MAGNESIUM [Concomitant]
     Route: 065
  9. TRAZODONE HYDROCHLORIDE [Concomitant]
     Route: 065
  10. CODEINE [Concomitant]
     Route: 065

REACTIONS (5)
  - CHEST PAIN [None]
  - FEMORAL ARTERY OCCLUSION [None]
  - HEADACHE [None]
  - LUNG INFECTION [None]
  - PROSTATIC DISORDER [None]
